FAERS Safety Report 4587044-4 (Version None)
Quarter: 2005Q1

REPORT INFORMATION
  Report Type: 
  Country: None (occurrence: None)
  Receive Date: 20050214
  Receipt Date: 20050208
  Transmission Date: 20050727
  Serious: Yes (Other)
  Sender: FDA-Public Use
  Company Number: 2005-01-1894

PATIENT
  Age: 40 Year
  Sex: Male

DRUGS (2)
  1. VIRAFERONPEG [Suspect]
     Indication: HEPATITIS C
     Dosage: 1.5 UG/KG SUBCUTANEOUS
     Route: 058
     Dates: start: 20041101
  2. REBETOL [Suspect]
     Indication: HEPATITIS C
     Dosage: ORAL
     Route: 048
     Dates: start: 20041101

REACTIONS (2)
  - ANAEMIA [None]
  - LEUKOPENIA [None]
